FAERS Safety Report 16028988 (Version 1)
Quarter: 2019Q1

REPORT INFORMATION
  Report Type: Spontaneous
  Country: US (occurrence: US)
  Receive Date: 20190304
  Receipt Date: 20190304
  Transmission Date: 20190418
  Serious: No
  Sender: FDA-Public Use
  Company Number: US-IMPAX LABORATORIES, LLC-2018-IPXL-01375

PATIENT
  Age: 61 Year
  Sex: Male

DRUGS (10)
  1. IRBESARTAN. [Concomitant]
     Active Substance: IRBESARTAN
     Indication: HYPERTENSION
     Dosage: 300 MG, 1 /DAY
     Route: 065
  2. CARBIDOPA-LEVODOPA ER [Suspect]
     Active Substance: CARBIDOPA\LEVODOPA
     Indication: PARKINSON^S DISEASE
     Dosage: UNK
     Route: 065
  3. AMANTADINE. [Concomitant]
     Active Substance: AMANTADINE HYDROCHLORIDE
     Indication: PARKINSON^S DISEASE
     Dosage: 100 MG, QD
     Route: 065
     Dates: start: 201201
  4. LATANOPROST. [Concomitant]
     Active Substance: LATANOPROST
     Indication: GLAUCOMA
     Dosage: 2.5 MG, ONE DROP IN EACH EYE
     Route: 065
  5. HYDROCHLOROTH [Concomitant]
     Active Substance: HYDROCHLOROTHIAZIDE
     Indication: DIURETIC THERAPY
     Dosage: 12.5 MG, UNK
     Route: 065
  6. HYDROCHLOROTH [Concomitant]
     Active Substance: HYDROCHLOROTHIAZIDE
     Indication: HYPERTENSION
  7. RYTARY [Suspect]
     Active Substance: CARBIDOPA\LEVODOPA
     Dosage: 36.25/145 MG, 2 PILLS THEN 1 PILL THEN 2 PILLS THEN 1 PILL (SIX CAPSULES IN DIVIDED DOSES DAILY)
     Route: 065
     Dates: start: 201804
  8. TRAVATAN Z [Concomitant]
     Active Substance: TRAVOPROST
     Indication: GLAUCOMA
     Dosage: UNK
     Route: 065
  9. RASAGILINE. [Concomitant]
     Active Substance: RASAGILINE
     Indication: PARKINSON^S DISEASE
     Dosage: 1 MG, QD
     Route: 065
  10. RYTARY [Suspect]
     Active Substance: CARBIDOPA\LEVODOPA
     Indication: PARKINSON^S DISEASE
     Dosage: 36.25/145 MG, 1 CAPSULE, FOUR TIMES A DAY (QID) EVERY THREE AND HALF HOUR
     Route: 065
     Dates: start: 20180416, end: 201804

REACTIONS (7)
  - Freezing phenomenon [Not Recovered/Not Resolved]
  - Drug effect decreased [Unknown]
  - Constipation [Unknown]
  - Drug effect variable [Unknown]
  - Musculoskeletal stiffness [Not Recovered/Not Resolved]
  - Drug effect delayed [Unknown]
  - Therapeutic response shortened [Unknown]

NARRATIVE: CASE EVENT DATE: 201804
